FAERS Safety Report 7936095-8 (Version None)
Quarter: 2011Q4

REPORT INFORMATION
  Report Type: 
  Country: None (occurrence: None)
  Receive Date: 20111123
  Receipt Date: 20111110
  Transmission Date: 20120403
  Serious: Yes (Death, Hospitalization)
  Sender: FDA-Public Use
  Company Number: JP-AMGEN-JPNCT2010008251

PATIENT
  Age: 56 Year
  Sex: Male
  Weight: 75 kg

DRUGS (12)
  1. PANITUMUMAB [Suspect]
     Indication: COLORECTAL CANCER
     Dosage: 6 MG/KG, Q2WK
     Route: 041
     Dates: start: 20100721, end: 20100924
  2. RINDERON-VG [Concomitant]
     Dosage: UNK
     Route: 062
     Dates: start: 20100729, end: 20101111
  3. PANITUMUMAB [Suspect]
     Dosage: 6 MG/KG, Q2WK
     Route: 041
     Dates: start: 20101022, end: 20101022
  4. CORTICOSTEROIDS [Concomitant]
     Indication: PROPHYLAXIS
     Dosage: UNK
     Route: 065
  5. PYDOXAL [Concomitant]
     Dosage: 30 MG, UNK
     Route: 048
     Dates: start: 20100729, end: 20101111
  6. ANTIHISTAMINES [Concomitant]
     Indication: PROPHYLAXIS
     Dosage: UNK
     Route: 065
  7. HIRUDOID [Concomitant]
     Dosage: UNK
     Route: 062
     Dates: start: 20100729, end: 20101111
  8. OXYCONTIN [Concomitant]
     Route: 048
  9. RIBOFLAVIN TAB [Concomitant]
     Route: 048
     Dates: start: 20100729, end: 20101111
  10. OPIUM TINCTURE [Concomitant]
     Route: 048
     Dates: start: 20101008, end: 20101111
  11. LASIX [Concomitant]
     Route: 048
  12. DIOVAN [Concomitant]
     Route: 048

REACTIONS (5)
  - DERMATITIS ACNEIFORM [None]
  - COLORECTAL CANCER [None]
  - ANAEMIA [None]
  - HYPOMAGNESAEMIA [None]
  - DIARRHOEA [None]
